FAERS Safety Report 4674624-0 (Version None)
Quarter: 2005Q2

REPORT INFORMATION
  Report Type: 
  Country: None (occurrence: None)
  Receive Date: 20050519
  Receipt Date: 20050308
  Transmission Date: 20051028
  Serious: Yes (Other)
  Sender: FDA-Public Use
  Company Number: 602676

PATIENT
  Age: 34 Year
  Sex: Male

DRUGS (1)
  1. PROPLEX T [Suspect]
     Indication: HAEMOPHILIA
     Dates: start: 19830101, end: 19830101

REACTIONS (1)
  - HEPATITIS C VIRUS [None]
